FAERS Safety Report 5824216-2 (Version None)
Quarter: 2008Q3

REPORT INFORMATION
  Report Type: 
  Country: None (occurrence: None)
  Receive Date: 20080718
  Receipt Date: 20080429
  Transmission Date: 20090109
  Serious: Yes (Other)
  Sender: FDA-Public Use
  Company Number: US-WYE-H03907508

PATIENT
  Age: 70 Year
  Sex: Male
  Weight: 81.72 kg

DRUGS (2)
  1. ADVIL PM [Suspect]
     Indication: BACK PAIN
     Dosage: ORAL
     Route: 048
     Dates: start: 20080428, end: 20080428
  2. ZOCOR [Concomitant]

REACTIONS (2)
  - ANXIETY [None]
  - DRUG EFFECT DECREASED [None]
